FAERS Safety Report 8222378-3 (Version None)
Quarter: 2012Q1

REPORT INFORMATION
  Report Type: 
  Country: None (occurrence: None)
  Receive Date: 20120312
  Receipt Date: 20120228
  Transmission Date: 20120608
  Serious: Yes (Other)
  Sender: FDA-Public Use
  Company Number: DSA_55255_2012

PATIENT
  Age: 60 Year
  Sex: Female

DRUGS (5)
  1. MEPERIDINE HCL [Concomitant]
  2. METRONIDAZOLE [Concomitant]
  3. DICLOFENAC (DICLOFENAC) 1 DF [Suspect]
     Indication: PROCEDURAL PAIN
     Dosage: (1 DF BID) ; (DF)
  4. PROMETHAZINE [Concomitant]
  5. CEFOTAXIME [Concomitant]

REACTIONS (14)
  - HAEMORRHAGE [None]
  - ABDOMINAL PAIN [None]
  - HAEMATEMESIS [None]
  - EPISTAXIS [None]
  - ECCHYMOSIS [None]
  - PALLOR [None]
  - URINARY RETENTION [None]
  - HAEMOGLOBIN DECREASED [None]
  - HAEMATURIA [None]
  - ENDOMETRIAL DISORDER [None]
  - CERVICITIS [None]
  - THROMBOCYTOPENIA [None]
  - GINGIVAL BLEEDING [None]
  - INJECTION SITE HAEMATOMA [None]
